FAERS Safety Report 21784563 (Version 1)
Quarter: 2022Q4

REPORT INFORMATION
  Report Type: Report from Study
  Country: US (occurrence: US)
  Receive Date: 20221227
  Receipt Date: 20221227
  Transmission Date: 20230112
  Serious: No
  Sender: FDA-Public Use
  Company Number: US-ABBVIE-4247667

PATIENT
  Sex: Female

DRUGS (1)
  1. HUMIRA [Suspect]
     Active Substance: ADALIMUMAB
     Indication: Rheumatoid arthritis
     Dosage: FORM STRENGTH 40 MILLIGRAM
     Route: 058
     Dates: start: 20221015

REACTIONS (5)
  - Injection site pain [Recovering/Resolving]
  - Device issue [Unknown]
  - Injection site haemorrhage [Unknown]
  - Device use error [Not Recovered/Not Resolved]
  - Injection site reaction [Unknown]
